FAERS Safety Report 6086795-2 (Version None)
Quarter: 2009Q1

REPORT INFORMATION
  Report Type: 
  Country: None (occurrence: None)
  Receive Date: 20090213
  Receipt Date: 20090206
  Transmission Date: 20090719
  Serious: Yes (Other)
  Sender: FDA-Public Use
  Company Number: CHPA2009US02718

PATIENT
  Age: 60 Year
  Sex: Female
  Weight: 94 kg

DRUGS (3)
  1. PRIVATE LABEL (NCH) (NICOTNE) TRANS-THERAPEUTIC-SYSTEM [Suspect]
     Dosage: 21 MG, QD, TRANSDERMAL; 14 MG, QD FOR 5-7 DAYS, TRANSDERMAL; 7 MG, TRANSDERMAL; 14 MG, TRANSDERMAL
     Route: 062
     Dates: start: 20081203
  2. PRIVATE LABEL (NCH) (NICOTNE) TRANS-THERAPEUTIC-SYSTEM [Suspect]
     Dosage: 21 MG, QD, TRANSDERMAL; 14 MG, QD FOR 5-7 DAYS, TRANSDERMAL; 7 MG, TRANSDERMAL; 14 MG, TRANSDERMAL
     Route: 062
     Dates: start: 20090101
  3. PRIVATE LABEL (NCH) (NICOTNE) TRANS-THERAPEUTIC-SYSTEM [Suspect]
     Dosage: 21 MG, QD, TRANSDERMAL; 14 MG, QD FOR 5-7 DAYS, TRANSDERMAL; 7 MG, TRANSDERMAL; 14 MG, TRANSDERMAL
     Route: 062
     Dates: start: 20090101

REACTIONS (12)
  - BLOOD PRESSURE INCREASED [None]
  - CARDIAC ARREST [None]
  - DRUG INEFFECTIVE [None]
  - GASTROINTESTINAL DISORDER [None]
  - HEADACHE [None]
  - INAPPROPRIATE SCHEDULE OF DRUG ADMINISTRATION [None]
  - LOSS OF CONSCIOUSNESS [None]
  - NICOTINE DEPENDENCE [None]
  - NIGHT SWEATS [None]
  - PNEUMONIA [None]
  - THERAPEUTIC RESPONSE DECREASED [None]
  - TREATMENT NONCOMPLIANCE [None]
